FAERS Safety Report 4504976-3 (Version None)
Quarter: 2004Q4

REPORT INFORMATION
  Report Type: 
  Country: None (occurrence: None)
  Receive Date: 20041116
  Receipt Date: 20041029
  Transmission Date: 20050328
  Serious: Yes (Hospitalization)
  Sender: FDA-Public Use
  Company Number: 2004IC000858

PATIENT
  Age: 67 Year
  Sex: Male

DRUGS (7)
  1. FLUOROURACIL [Suspect]
     Indication: GASTRIC CANCER
     Dosage: 500 MG/M2, INTRAVENOUS
     Route: 042
     Dates: start: 20040624, end: 20040812
  2. FLUOROURACIL [Suspect]
     Indication: GASTRIC CANCER
     Dosage: 500 MG/M2, INTRAVENOUS
     Route: 042
     Dates: start: 20040909, end: 20040916
  3. CALCIUM LEVOFOLINATE (CALCIUM LEVOFOLINATE) [Suspect]
     Indication: GASTRIC CANCER
     Dosage: 250 MG/M2, INTRAVENOUS
     Route: 042
     Dates: start: 20040624, end: 20040812
  4. CALCIUM LEVOFOLINATE (CALCIUM LEVOFOLINATE) [Suspect]
     Indication: GASTRIC CANCER
     Dosage: 250 MG/M2, INTRAVENOUS
     Route: 042
     Dates: start: 20040909, end: 20040916
  5. FERROMIA [Concomitant]
  6. CINAL [Concomitant]
  7. MAGNESIUM OXIDE [Concomitant]

REACTIONS (4)
  - ANEURYSM [None]
  - ARTERIOSCLEROSIS [None]
  - BLOOD PRESSURE SYSTOLIC INCREASED [None]
  - BRAIN STEM INFARCTION [None]
